FAERS Safety Report 6459954-4 (Version None)
Quarter: 2009Q4

REPORT INFORMATION
  Report Type: 
  Country: None (occurrence: None)
  Receive Date: 20091129
  Receipt Date: 20091116
  Transmission Date: 20100525
  Serious: Yes (Other)
  Sender: FDA-Public Use
  Company Number: PHEH2009US15207

PATIENT
  Weight: 61.224 kg

DRUGS (2)
  1. RECLAST [Suspect]
     Dosage: 5 MG, ONCE/SINGLE
     Dates: start: 20090701, end: 20090701
  2. CALCIUM WITH VITAMIN D [Concomitant]

REACTIONS (1)
  - NEUTROPENIA [None]
